FAERS Safety Report 4533266-8 (Version None)
Quarter: 2004Q4

REPORT INFORMATION
  Report Type: 
  Country: None (occurrence: None)
  Receive Date: 20041221
  Receipt Date: 20041214
  Transmission Date: 20050328
  Serious: Yes (Hospitalization, Other)
  Sender: FDA-Public Use
  Company Number: US-BRISTOL-MYERS SQUIBB COMPANY-12795696

PATIENT
  Age: 40 Year
  Sex: Female
  Weight: 92 kg

DRUGS (7)
  1. CETUXIMAB [Suspect]
     Indication: OVARIAN CANCER
     Dosage: START DATE 10-DEC-04, START DATE THIS COURSE 01-DEC-04
     Route: 042
     Dates: start: 20041201, end: 20041201
  2. CARBOPLATIN [Suspect]
     Indication: OVARIAN CANCER
     Dosage: START DATE 10-NOV-04, THIS COURSE STARTED 01-DEC-04
     Route: 042
     Dates: start: 20041201, end: 20041201
  3. OXYCONTIN [Concomitant]
  4. PREMARIN [Concomitant]
  5. BEXTRA [Concomitant]
  6. NEURONTIN [Concomitant]
  7. REGLAN [Concomitant]

REACTIONS (3)
  - ABDOMINAL PAIN [None]
  - DERMATITIS ACNEIFORM [None]
  - HYPERSENSITIVITY [None]
